FAERS Safety Report 10825973 (Version 1)
Quarter: 2015Q1

REPORT INFORMATION
  Report Type: Spontaneous
  Country: ZA (occurrence: None)
  Receive Date: 20150213
  Receipt Date: 20150213
  Transmission Date: 20150721
  Serious: Yes (Hospitalization, Other)
  Sender: FDA-Public Use
  Company Number: 2012BI035603

PATIENT
  Age: 19 Year
  Sex: Male
  Weight: 66 kg

DRUGS (1)
  1. RFIXFC [Suspect]
     Active Substance: EFTRENONACOG ALFA
     Indication: FACTOR IX DEFICIENCY
     Route: 042
     Dates: start: 20110627, end: 20120830

REACTIONS (8)
  - Stupor [None]
  - Headache [None]
  - Extradural haematoma [None]
  - Subarachnoid haemorrhage [None]
  - Hydrocephalus [None]
  - Nervous system disorder [None]
  - Road traffic accident [None]
  - Brain midline shift [None]

NARRATIVE: CASE EVENT DATE: 20120903
